FAERS Safety Report 9967097 (Version 1)
Quarter: 2014Q1

REPORT INFORMATION
  Report Type: Report from Study
  Country: US (occurrence: US)
  Receive Date: 20140305
  Receipt Date: 20140305
  Transmission Date: 20141002
  Serious: No
  Sender: FDA-Public Use
  Company Number: US-ABBVIE-13P-163-1138393-00

PATIENT
  Age: 47 Year
  Sex: Male
  Weight: 157.54 kg

DRUGS (13)
  1. HUMIRA [Suspect]
     Indication: PSORIASIS
     Route: 058
     Dates: start: 20130826, end: 20130826
  2. HUMIRA [Suspect]
     Route: 058
     Dates: start: 20130902
  3. LISINOPRIL [Concomitant]
     Indication: HYPERTENSION
  4. AMLODIPINE [Concomitant]
     Indication: HYPERTENSION
  5. BENADRYL [Concomitant]
     Indication: PRURITUS
  6. ZAFIRLUKAST [Concomitant]
     Indication: CHRONIC OBSTRUCTIVE PULMONARY DISEASE
  7. ASPIRIN [Concomitant]
     Indication: CARDIAC DISORDER
  8. DALIRESP [Concomitant]
     Indication: CHRONIC OBSTRUCTIVE PULMONARY DISEASE
  9. ALBUTEROL INHALER [Concomitant]
     Indication: CHRONIC OBSTRUCTIVE PULMONARY DISEASE
  10. UNNAMED MEDICATION [Concomitant]
     Indication: HYPERSENSITIVITY
  11. ADVAIR [Concomitant]
     Indication: CHRONIC OBSTRUCTIVE PULMONARY DISEASE
  12. ALBUTEROL [Concomitant]
     Indication: CHRONIC OBSTRUCTIVE PULMONARY DISEASE
  13. PERCOCET [Concomitant]
     Indication: PAIN

REACTIONS (4)
  - Gingival pain [Not Recovered/Not Resolved]
  - Neck pain [Recovered/Resolved]
  - Gingival disorder [Recovered/Resolved]
  - Gingival pain [Recovered/Resolved]
